FAERS Safety Report 23455118 (Version 6)
Quarter: 2025Q4

REPORT INFORMATION
  Report Type: Spontaneous
  Country: AU (occurrence: AU)
  Receive Date: 20240130
  Receipt Date: 20251216
  Transmission Date: 20260117
  Serious: Yes (Hospitalization)
  Sender: ROCHE
  Company Number: AU-ROCHE-3498932

PATIENT
  Age: 72 Year
  Sex: Female

DRUGS (13)
  1. VABYSMO [Suspect]
     Active Substance: FARICIMAB-SVOA
     Indication: Age-related macular degeneration
  2. VABYSMO [Suspect]
     Active Substance: FARICIMAB-SVOA
     Indication: Neovascular age-related macular degeneration
  3. ASPIRIN [Concomitant]
     Active Substance: ASPIRIN
  4. TIMOLOL [Concomitant]
     Active Substance: TIMOLOL
  5. HYDROCORTISONE ACETATE [Concomitant]
     Active Substance: HYDROCORTISONE ACETATE
  6. PHENYLEPHRINE [Concomitant]
     Active Substance: PHENYLEPHRINE
  7. PREDNISOLONE [Concomitant]
     Active Substance: PREDNISOLONE
  8. AFLIBERCEPT [Concomitant]
     Active Substance: AFLIBERCEPT
  9. FENOFIBRATE [Concomitant]
     Active Substance: FENOFIBRATE
  10. HYDROCHLOROTHIAZIDE [Concomitant]
     Active Substance: HYDROCHLOROTHIAZIDE
  11. AMLODIPINE [Concomitant]
     Active Substance: AMLODIPINE BESYLATE
  12. OLMESARTAN [Concomitant]
     Active Substance: OLMESARTAN
  13. CLOPIDOGREL [Concomitant]
     Active Substance: CLOPIDOGREL BISULFATE

REACTIONS (1)
  - Retinal occlusive vasculitis [Recovered/Resolved]
